FAERS Safety Report 5774768-6 (Version None)
Quarter: 2008Q2

REPORT INFORMATION
  Report Type: 
  Country: None (occurrence: None)
  Receive Date: 20080616
  Receipt Date: 20080616
  Transmission Date: 20081010
  Serious: Yes (Other)
  Sender: FDA-Public Use
  Company Number: None

PATIENT
  Sex: Female
  Weight: 52.1637 kg

DRUGS (1)
  1. FOSAMAX [Suspect]
     Indication: OSTEOPOROSIS
     Dosage: 1 WEEKLY 5 YEARS OR MORE

REACTIONS (4)
  - ABDOMINAL DISTENSION [None]
  - ASTHENIA [None]
  - CONSTIPATION [None]
  - DYSPNOEA [None]
